FAERS Safety Report 16043796 (Version 1)
Quarter: 2019Q1

REPORT INFORMATION
  Report Type: Spontaneous
  Country: SK (occurrence: SK)
  Receive Date: 20190306
  Receipt Date: 20190306
  Transmission Date: 20190418
  Serious: Yes (Other)
  Sender: FDA-Public Use
  Company Number: PHHY2017SK045964

PATIENT
  Sex: Male

DRUGS (1)
  1. DOXYHEXAL [Suspect]
     Active Substance: DOXYCYCLINE
     Indication: PROSTATITIS
     Dosage: 100 MG, UNK
     Route: 065
     Dates: start: 20160811, end: 20160812

REACTIONS (6)
  - Loss of consciousness [Unknown]
  - Bone pain [Unknown]
  - Feeling abnormal [Unknown]
  - Dysphagia [Unknown]
  - Hypersensitivity [Unknown]
  - Muscle spasms [Unknown]

NARRATIVE: CASE EVENT DATE: 20160811
